FAERS Safety Report 8066547-4 (Version None)
Quarter: 2012Q1

REPORT INFORMATION
  Report Type: 
  Country: None (occurrence: None)
  Receive Date: 20120124
  Receipt Date: 20120116
  Transmission Date: 20120608
  Serious: Yes (Hospitalization)
  Sender: FDA-Public Use
  Company Number: PHHY2010DE15504

PATIENT
  Age: 45 Year
  Sex: Male
  Weight: 86 kg

DRUGS (1)
  1. TASIGNA [Suspect]
     Indication: CHRONIC MYELOID LEUKAEMIA
     Dosage: 2X200 MG IN THE MORNING
     Route: 048
     Dates: start: 20070101

REACTIONS (6)
  - IMPAIRED HEALING [None]
  - OSTEOPOROSIS [None]
  - MULTIPLE FRACTURES [None]
  - BLOOD BILIRUBIN INCREASED [None]
  - CALLUS FORMATION DELAYED [None]
  - OSTEOARTHRITIS [None]
